FAERS Safety Report 7592365-7 (Version None)
Quarter: 2011Q3

REPORT INFORMATION
  Report Type: 
  Country: None (occurrence: None)
  Receive Date: 20110705
  Receipt Date: 20110705
  Transmission Date: 20111222
  Serious: Yes (Other)
  Sender: FDA-Public Use
  Company Number: None

PATIENT
  Age: 55 Year
  Sex: Female
  Weight: 53.5244 kg

DRUGS (6)
  1. SAVELLA [Suspect]
     Indication: FIBROMYALGIA
     Dosage: 50 MG BID PO
     Route: 048
     Dates: start: 20110612, end: 20110626
  2. TRAMADOL HCL [Concomitant]
  3. MAXALT [Concomitant]
  4. SAVELLA [Suspect]
     Indication: BACK PAIN
  5. SAVELLA [Suspect]
     Indication: INTERVERTEBRAL DISC PROTRUSION
  6. SAVELLA [Suspect]
     Indication: SCIATICA

REACTIONS (10)
  - HEART RATE INCREASED [None]
  - DRUG INTERACTION [None]
  - INSOMNIA [None]
  - PALPITATIONS [None]
  - BLOOD PRESSURE INCREASED [None]
  - VISION BLURRED [None]
  - MALAISE [None]
  - MIGRAINE [None]
  - EYE HAEMORRHAGE [None]
  - ANGER [None]
